FAERS Safety Report 11831252 (Version 3)
Quarter: 2015Q4

REPORT INFORMATION
  Report Type: Spontaneous
  Country: JP (occurrence: JP)
  Receive Date: 20151214
  Receipt Date: 20151229
  Transmission Date: 20160305
  Serious: Yes (Death)
  Sender: FDA-Public Use
  Company Number: JP-TAKEDA-2015TJP023635AA

PATIENT
  Age: 75 Year
  Sex: Female

DRUGS (6)
  1. REMINYL [Concomitant]
     Active Substance: GALANTAMINE
     Indication: DEMENTIA ALZHEIMER^S TYPE
     Dosage: 8 MG, QD
     Route: 048
     Dates: start: 20131004, end: 20131101
  2. RIVASTACH [Concomitant]
     Active Substance: RIVASTIGMINE
     Indication: DEMENTIA WITH LEWY BODIES
     Dosage: 4.5 MG, QD
     Route: 062
     Dates: start: 20141030, end: 20150108
  3. MAGMITT [Concomitant]
     Active Substance: MAGNESIUM OXIDE
     Indication: CONSTIPATION
     Dosage: 330 MG, TID
     Route: 048
     Dates: start: 20141224, end: 20150108
  4. ROZEREM [Suspect]
     Active Substance: RAMELTEON
     Indication: INSOMNIA
     Dosage: 8 MG, QD
     Route: 048
     Dates: start: 20140508, end: 20150108
  5. YOKUKANSAN [Concomitant]
     Active Substance: HERBALS
     Indication: HALLUCINATION, VISUAL
     Dosage: 2.5 G, BID
     Route: 048
     Dates: start: 20140927, end: 20150108
  6. REMINYL [Concomitant]
     Active Substance: GALANTAMINE
     Dosage: 8 MG, BID
     Route: 048
     Dates: start: 20131102, end: 20141029

REACTIONS (1)
  - Death [Fatal]

NARRATIVE: CASE EVENT DATE: 20150109
